FAERS Safety Report 23854694 (Version 3)
Quarter: 2024Q3

REPORT INFORMATION
  Report Type: Spontaneous
  Country: US (occurrence: US)
  Receive Date: 20240514
  Receipt Date: 20240708
  Transmission Date: 20241017
  Serious: Yes (Hospitalization, Other)
  Sender: SANOFI AVENTIS
  Company Number: US-SA-SAC20240514000069

PATIENT
  Age: 42 Year
  Sex: Female

DRUGS (1)
  1. DUPIXENT [Suspect]
     Active Substance: DUPILUMAB
     Indication: Eosinophilic oesophagitis
     Dosage: 300 MG, QW
     Route: 058
     Dates: start: 202312

REACTIONS (5)
  - Optic neuritis [Not Recovered/Not Resolved]
  - Eye pain [Not Recovered/Not Resolved]
  - Tongue paralysis [Unknown]
  - Visual field defect [Unknown]
  - Sensory loss [Unknown]

NARRATIVE: CASE EVENT DATE: 20240426
